FAERS Safety Report 22168164 (Version 2)
Quarter: 2023Q2

REPORT INFORMATION
  Report Type: Spontaneous
  Country: JP (occurrence: JP)
  Receive Date: 20230403
  Receipt Date: 20230412
  Transmission Date: 20230722
  Serious: Yes (Other)
  Sender: FDA-Public Use
  Company Number: JP-ELI_LILLY_AND_COMPANY-JP202303013739

PATIENT
  Age: 73 Year
  Sex: Female

DRUGS (4)
  1. VERZENIO [Suspect]
     Active Substance: ABEMACICLIB
     Indication: Breast cancer recurrent
     Route: 048
  2. FULVESTRANT [Concomitant]
     Active Substance: FULVESTRANT
     Indication: Breast cancer recurrent
  3. DENOSUMAB [Concomitant]
     Active Substance: DENOSUMAB
  4. CALCIUM CARBONATE;COLECALCIFEROL;MAGNESIUM CA [Concomitant]

REACTIONS (1)
  - Drug-induced liver injury [Recovered/Resolved]
